FAERS Safety Report 13726597 (Version 1)
Quarter: 2017Q3

REPORT INFORMATION
  Report Type: Spontaneous
  Country: None (occurrence: US)
  Receive Date: 20170706
  Receipt Date: 20170706
  Transmission Date: 20171127
  Serious: No
  Sender: FDA-Public Use
  Company Number: US-MERZ NORTH AMERICA, INC.-17MRZ-00210

PATIENT
  Sex: Female

DRUGS (1)
  1. ASCLERA [Suspect]
     Active Substance: POLIDOCANOL
     Indication: SCLEROTHERAPY

REACTIONS (2)
  - Swelling [Unknown]
  - Pain [Unknown]
